FAERS Safety Report 13627840 (Version 1)
Quarter: 2017Q2

REPORT INFORMATION
  Report Type: Spontaneous
  Country: US (occurrence: US)
  Receive Date: 20170607
  Receipt Date: 20170607
  Transmission Date: 20170830
  Serious: Yes (Hospitalization)
  Sender: FDA-Public Use
  Company Number: None

PATIENT
  Age: 51 Year
  Sex: Female
  Weight: 78.75 kg

DRUGS (1)
  1. AZITHROMYCIN ANHYDROUS. [Suspect]
     Active Substance: AZITHROMYCIN ANHYDROUS
     Indication: PNEUMONIA

REACTIONS (10)
  - Condition aggravated [None]
  - Back pain [None]
  - Cough [None]
  - Dyspnoea [None]
  - Pulmonary embolism [None]
  - Pyrexia [None]
  - Vein rupture [None]
  - Poor venous access [None]
  - Chest pain [None]
  - Flank pain [None]

NARRATIVE: CASE EVENT DATE: 20170521
